FAERS Safety Report 9813232 (Version 2)
Quarter: 2014Q1

REPORT INFORMATION
  Report Type: Spontaneous
  Country: JP (occurrence: JP)
  Receive Date: 20140113
  Receipt Date: 20140207
  Transmission Date: 20141002
  Serious: Yes (Other)
  Sender: FDA-Public Use
  Company Number: JP-SA-2014SA002768

PATIENT
  Age: 10 Year
  Sex: Male

DRUGS (8)
  1. PREDNISOLONE [Suspect]
     Indication: GRAFT VERSUS HOST DISEASE
     Route: 065
  2. MYCOPHENOLATE MOFETIL [Suspect]
     Indication: GRAFT VERSUS HOST DISEASE
     Route: 065
  3. METHOTREXATE [Suspect]
     Indication: GRAFT VERSUS HOST DISEASE
     Route: 065
  4. FLUDARABINE PHOSPHATE [Suspect]
     Indication: ACUTE LYMPHOCYTIC LEUKAEMIA RECURRENT
     Dosage: PRETREATMENT
     Route: 065
  5. BECLOMETASONE DIPROPIONATE [Suspect]
     Indication: GRAFT VERSUS HOST DISEASE
     Route: 048
  6. L-PAM [Suspect]
     Indication: ACUTE LYMPHOCYTIC LEUKAEMIA RECURRENT
     Dosage: PRETREATMENT
     Route: 065
  7. THERAPEUTIC RADIOPHARMACEUTICALS [Suspect]
     Indication: ACUTE LYMPHOCYTIC LEUKAEMIA RECURRENT
     Dosage: PRETREATMENT; DOSE: 4 GY
     Route: 065
  8. TACROLIMUS [Suspect]
     Indication: GRAFT VERSUS HOST DISEASE
     Route: 065

REACTIONS (3)
  - Inflammatory myofibroblastic tumour [Unknown]
  - Dyspnoea exertional [Unknown]
  - Cough [Unknown]
